FAERS Safety Report 6077330-3 (Version None)
Quarter: 2009Q1

REPORT INFORMATION
  Report Type: 
  Country: None (occurrence: None)
  Receive Date: 20090213
  Receipt Date: 20090205
  Transmission Date: 20090719
  Serious: Yes (Hospitalization)
  Sender: FDA-Public Use
  Company Number: B0557716A

PATIENT
  Age: 44 Year
  Sex: Female

DRUGS (16)
  1. TYVERB [Suspect]
     Route: 048
     Dates: start: 20081201
  2. TAVANIC [Concomitant]
     Route: 048
     Dates: start: 20081129, end: 20081209
  3. FLAGYL [Concomitant]
  4. PRIMPERAN TAB [Concomitant]
  5. MORPHINE [Concomitant]
  6. TAZOCILLINE [Concomitant]
  7. LANTUS [Concomitant]
  8. LOVENOX [Concomitant]
  9. ATARAX [Concomitant]
  10. DIFFU K [Concomitant]
  11. INIPOMP [Concomitant]
  12. OXYNORM [Concomitant]
  13. ALUMINUM HYDROXIDE AND MAGNESIUM TRISILICATE [Concomitant]
  14. STILNOX [Concomitant]
  15. DURAGESIC-100 [Concomitant]
  16. FORLAX [Concomitant]

REACTIONS (2)
  - PAIN [None]
  - RASH MACULO-PAPULAR [None]
